FAERS Safety Report 12405632 (Version 2)
Quarter: 2016Q2

REPORT INFORMATION
  Report Type: Spontaneous
  Country: US (occurrence: US)
  Receive Date: 20160526
  Receipt Date: 20160606
  Transmission Date: 20160815
  Serious: No
  Sender: FDA-Public Use
  Company Number: US-BIOGEN-2016BI00233845

PATIENT
  Sex: Female

DRUGS (2)
  1. TECFIDERA [Suspect]
     Active Substance: DIMETHYL FUMARATE
     Dosage: 240MILLIGRAM IN AM?120 MILLIGRAM IN PM
     Route: 048
  2. TECFIDERA [Suspect]
     Active Substance: DIMETHYL FUMARATE
     Indication: MULTIPLE SCLEROSIS
     Dosage: MAINTENANCE DOSE
     Route: 048
     Dates: start: 20130610

REACTIONS (7)
  - Vomiting [Recovered/Resolved]
  - Balance disorder [Recovered/Resolved]
  - Malaise [Not Recovered/Not Resolved]
  - Visual acuity reduced [Recovered/Resolved]
  - Diplopia [Not Recovered/Not Resolved]
  - Diarrhoea [Recovered/Resolved]
  - Prescribed underdose [Not Recovered/Not Resolved]
